FAERS Safety Report 5484985-0 (Version None)
Quarter: 2007Q4

REPORT INFORMATION
  Report Type: 
  Country: None (occurrence: None)
  Receive Date: 20071001
  Receipt Date: 20070918
  Transmission Date: 20080405
  Serious: Yes (Death)
  Sender: FDA-Public Use
  Company Number: THYM-11543

PATIENT
  Sex: Female

DRUGS (2)
  1. THYMOGLOBULIN [Suspect]
     Indication: RENAL TRANSPLANT
  2. CELLCEPT [Concomitant]

REACTIONS (1)
  - COAGULOPATHY [None]
